FAERS Safety Report 10452735 (Version 1)
Quarter: 2014Q3

REPORT INFORMATION
  Report Type: Spontaneous
  Country: US (occurrence: US)
  Receive Date: 20140915
  Receipt Date: 20140915
  Transmission Date: 20150326
  Serious: Yes (Hospitalization)
  Sender: FDA-Public Use
  Company Number: US-TARO PHARMACEUTICALS U.S.A., INC-2014SUN02065

PATIENT
  Age: 51 Year
  Sex: Female

DRUGS (1)
  1. PHENYTOIN SODIUM. [Suspect]
     Active Substance: PHENYTOIN SODIUM
     Indication: CONVULSION
     Route: 065

REACTIONS (7)
  - Bradycardia [Recovering/Resolving]
  - Coma [Recovering/Resolving]
  - Renal failure acute [Recovering/Resolving]
  - Hypotension [Recovering/Resolving]
  - Metabolic acidosis [Recovering/Resolving]
  - Cardiac arrest [Recovering/Resolving]
  - Overdose [Recovering/Resolving]
